FAERS Safety Report 20871608 (Version 1)
Quarter: 2022Q2

REPORT INFORMATION
  Report Type: Spontaneous
  Country: GB (occurrence: GB)
  Receive Date: 20220525
  Receipt Date: 20220525
  Transmission Date: 20220721
  Serious: Yes (Life-Threatening, Other)
  Sender: FDA-Public Use
  Company Number: None

PATIENT
  Age: 62 Year
  Sex: Male
  Weight: 109 kg

DRUGS (5)
  1. ROCURONIUM [Suspect]
     Active Substance: ROCURONIUM BROMIDE
     Indication: Induction of anaesthesia
     Dosage: 50 MILLIGRAM, (50MG)
     Route: 040
     Dates: start: 20211220
  2. BUPIVACAINE [Concomitant]
     Active Substance: BUPIVACAINE
     Indication: Induction of anaesthesia
     Dosage: UNK
     Route: 037
     Dates: start: 20211220
  3. DIAMORPHINE [Concomitant]
     Active Substance: DIAMORPHINE
     Indication: Induction of anaesthesia
     Dosage: UNK
     Route: 037
     Dates: start: 20211220
  4. PROPOFOL [Concomitant]
     Active Substance: PROPOFOL
     Indication: Induction of anaesthesia
     Dosage: 150 MILLIGRAM
     Route: 040
     Dates: start: 20211220
  5. REMIFENTANIL [Concomitant]
     Active Substance: REMIFENTANIL
     Indication: Induction of anaesthesia
     Dosage: 5 MILLIGRAM
     Route: 040
     Dates: start: 20211220

REACTIONS (2)
  - Cardiac arrest [Recovering/Resolving]
  - Anaphylactic reaction [Recovering/Resolving]

NARRATIVE: CASE EVENT DATE: 20211220
